FAERS Safety Report 20335731 (Version 2)
Quarter: 2022Q1

REPORT INFORMATION
  Report Type: Spontaneous
  Country: FR (occurrence: FR)
  Receive Date: 20220114
  Receipt Date: 20220118
  Transmission Date: 20220423
  Serious: No
  Sender: FDA-Public Use
  Company Number: FR-009507513-2201FRA000903

PATIENT
  Sex: Male

DRUGS (2)
  1. STROMECTOL [Suspect]
     Active Substance: IVERMECTIN
     Indication: Infection parasitic
     Route: 048
  2. STROMECTOL [Suspect]
     Active Substance: IVERMECTIN
     Indication: Delusion of parasitosis

REACTIONS (7)
  - Photosensitivity reaction [Unknown]
  - Sensory disturbance [Unknown]
  - Ill-defined disorder [Unknown]
  - Somnolence [Unknown]
  - Confusional state [Unknown]
  - Overdose [Unknown]
  - Drug ineffective for unapproved indication [Unknown]
